FAERS Safety Report 12599622 (Version 2)
Quarter: 2016Q3

REPORT INFORMATION
  Report Type: Spontaneous
  Country: US (occurrence: US)
  Receive Date: 20160727
  Receipt Date: 20160728
  Transmission Date: 20161109
  Serious: Yes (Other)
  Sender: FDA-Public Use
  Company Number: US-GLAXOSMITHKLINE-US2016108450

PATIENT
  Sex: Female

DRUGS (2)
  1. EXCEDRIN MIGRAINE [Suspect]
     Active Substance: ACETAMINOPHEN\ASPIRIN\CAFFEINE
     Indication: MUSCULOSKELETAL PAIN
     Dosage: UNK
     Route: 048
  2. EXCEDRIN EXTRA STRENGTH [Suspect]
     Active Substance: ACETAMINOPHEN\ASPIRIN\CAFFEINE
     Indication: PAIN
     Dosage: 1 DF, QD
     Route: 048
     Dates: start: 1975

REACTIONS (13)
  - Muscle rupture [Unknown]
  - Eye operation [Unknown]
  - Fall [Unknown]
  - Vision blurred [Not Recovered/Not Resolved]
  - Cataract [Unknown]
  - Abdominal pain [Unknown]
  - Gastrointestinal disorder [Unknown]
  - Accident [Unknown]
  - Craniocerebral injury [Unknown]
  - Incorrect dosage administered [Unknown]
  - Intentional product misuse [Unknown]
  - Therapeutic response unexpected [Unknown]
  - Expired product administered [Unknown]

NARRATIVE: CASE EVENT DATE: 201508
